FAERS Safety Report 6555788-0 (Version None)
Quarter: 2010Q1

REPORT INFORMATION
  Report Type: 
  Country: None (occurrence: None)
  Receive Date: 20100125
  Receipt Date: 20100111
  Transmission Date: 20100710
  Serious: Yes (Death, Other)
  Sender: FDA-Public Use
  Company Number: 100114-0000045

PATIENT

DRUGS (10)
  1. ELSPAR [Suspect]
     Indication: ACUTE LYMPHOCYTIC LEUKAEMIA
  2. VINCRISTINE [Suspect]
     Indication: CHEMOTHERAPY
  3. PREDNISOLONE [Suspect]
     Indication: CHEMOTHERAPY
  4. DEXAMETHASONE [Suspect]
     Indication: CHEMOTHERAPY
  5. DOXORUBICINE (DOXORUBICINE) [Suspect]
     Indication: CHEMOTHERAPY
  6. CYTARABINE [Suspect]
     Indication: CHEMOTHERAPY
  7. ETOPOSIDE [Suspect]
     Indication: CHEMOTHERAPY
  8. CYCLOPHOSPHAMIDE [Suspect]
     Indication: CHEMOTHERAPY
  9. METHOTREXATE [Suspect]
     Indication: CHEMOTHERAPY
  10. MERCAPTOPURINE [Suspect]

REACTIONS (2)
  - CEREBRAL INFARCTION [None]
  - PANCREATITIS ACUTE [None]
